FAERS Safety Report 19057659 (Version 4)
Quarter: 2021Q2

REPORT INFORMATION
  Report Type: Report from Study
  Country: US (occurrence: US)
  Receive Date: 20210324
  Receipt Date: 20210629
  Transmission Date: 20210717
  Serious: Yes (Hospitalization, Other)
  Sender: FDA-Public Use
  Company Number: US-BIOGEN-2021BI00990555

PATIENT
  Age: 64 Year
  Sex: Female

DRUGS (3)
  1. TYSABRI [Interacting]
     Active Substance: NATALIZUMAB
     Route: 065
     Dates: start: 202005, end: 202011
  2. TYSABRI [Interacting]
     Active Substance: NATALIZUMAB
     Dosage: INFUSED OVER 1 HOUR
     Route: 042
     Dates: start: 20200618
  3. TYSABRI [Suspect]
     Active Substance: NATALIZUMAB
     Indication: MULTIPLE SCLEROSIS
     Route: 065
     Dates: start: 20200618, end: 202011

REACTIONS (8)
  - Femur fracture [Unknown]
  - Diarrhoea [Unknown]
  - Delusion [Recovered/Resolved]
  - Drug interaction [Unknown]
  - Hallucination [Recovered/Resolved]
  - Ankle fracture [Unknown]
  - Dehydration [Unknown]
  - Fall [Recovered/Resolved]

NARRATIVE: CASE EVENT DATE: 202008
